FAERS Safety Report 7137967-7 (Version None)
Quarter: 2010Q4

REPORT INFORMATION
  Report Type: 
  Country: None (occurrence: None)
  Receive Date: 20101103
  Receipt Date: 20100826
  Transmission Date: 20110411
  Serious: Yes (Hospitalization)
  Sender: FDA-Public Use
  Company Number: 2010S1001303

PATIENT
  Age: 49 Year

DRUGS (2)
  1. CUBICIN [Suspect]
     Indication: OSTEOMYELITIS
  2. CEFTRIAXONE [Concomitant]

REACTIONS (1)
  - EOSINOPHILIC PNEUMONIA [None]
